FAERS Safety Report 4594940-0 (Version None)
Quarter: 2005Q1

REPORT INFORMATION
  Report Type: 
  Country: None (occurrence: None)
  Receive Date: 20050225
  Receipt Date: 20050218
  Transmission Date: 20050727
  Serious: Yes (Death, Hospitalization)
  Sender: FDA-Public Use
  Company Number: 212419

PATIENT
  Age: 81 Year
  Sex: Male

DRUGS (9)
  1. XOLAIR [Suspect]
     Indication: ASTHMA
     Dosage: 150 MG, SUBCUTANEOUS
     Route: 058
     Dates: start: 20041230
  2. PREDNISONE [Concomitant]
  3. COMBIVENT [Concomitant]
  4. ALBUTEROL [Concomitant]
  5. ATROVENT [Concomitant]
  6. RHINOCORT [Concomitant]
  7. ACTONEL [Concomitant]
  8. PEPCID COMPLETE [Concomitant]
  9. CALTRATE                (CALCIUM CARBONATE) [Concomitant]

REACTIONS (5)
  - ABDOMINAL PAIN [None]
  - CHOLECYSTITIS ACUTE [None]
  - IMPAIRED GASTRIC EMPTYING [None]
  - RENAL FAILURE [None]
  - RESPIRATORY FAILURE [None]
